FAERS Safety Report 5434268-X (Version None)
Quarter: 2007Q3

REPORT INFORMATION
  Report Type: 
  Country: None (occurrence: None)
  Receive Date: 20070828
  Receipt Date: 20070828
  Transmission Date: 20080115
  Serious: Yes (Life-Threatening, Hospitalization)
  Sender: FDA-Public Use
  Company Number: None

PATIENT
  Age: 74 Year
  Sex: Male

DRUGS (1)
  1. ZOSYN [Suspect]
     Indication: PNEUMONIA NECROTISING
     Dosage: 4500 MG EVERY 6 HR IV
     Route: 042
     Dates: start: 20070722, end: 20070802

REACTIONS (1)
  - THROMBOCYTOPENIA [None]
